FAERS Safety Report 20834481 (Version 1)
Quarter: 2022Q2

REPORT INFORMATION
  Report Type: Report from Study
  Country: US (occurrence: US)
  Receive Date: 20220516
  Receipt Date: 20220516
  Transmission Date: 20220721
  Serious: No
  Sender: FDA-Public Use
  Company Number: US-IGSA-BIG0018831

PATIENT
  Age: 55 Year
  Sex: Female
  Weight: 90.476 kg

DRUGS (4)
  1. GAMUNEX-C [Suspect]
     Active Substance: HUMAN IMMUNOGLOBULIN G
     Indication: Immunodeficiency
     Dosage: 30 MILLIGRAM, Q.8WK.
     Route: 042
     Dates: start: 20170101
  2. DIPHENHYDRAMINE HYDROCHLORIDE [Concomitant]
     Active Substance: DIPHENHYDRAMINE HYDROCHLORIDE
     Indication: Adverse drug reaction
  3. TYLENOL [Concomitant]
     Active Substance: ACETAMINOPHEN
     Indication: Adverse drug reaction
  4. RITUXAN [Concomitant]
     Active Substance: RITUXIMAB
     Indication: Adverse drug reaction

REACTIONS (2)
  - Throat tightness [Recovered/Resolved]
  - Dyspnoea [Recovered/Resolved]

NARRATIVE: CASE EVENT DATE: 20170101
